FAERS Safety Report 6005504-6 (Version None)
Quarter: 2008Q4

REPORT INFORMATION
  Report Type: 
  Country: None (occurrence: None)
  Receive Date: 20081217
  Receipt Date: 20080502
  Transmission Date: 20090506
  Serious: No
  Sender: FDA-Public Use
  Company Number: A0726861A

PATIENT
  Age: 29 Year

DRUGS (2)
  1. LEXIVA [Suspect]
     Indication: HIV INFECTION
     Dosage: 700MG TWICE PER DAY
     Route: 048
  2. TRUVADA [Concomitant]

REACTIONS (3)
  - NAUSEA [None]
  - TACHYCARDIA [None]
  - VISION BLURRED [None]
